FAERS Safety Report 10925328 (Version 1)
Quarter: 2015Q1

REPORT INFORMATION
  Report Type: Spontaneous
  Country: US (occurrence: US)
  Receive Date: 20150318
  Receipt Date: 20150318
  Transmission Date: 20150721
  Serious: No
  Sender: FDA-Public Use
  Company Number: US-PFIZER INC-2015090452

PATIENT
  Sex: Female

DRUGS (2)
  1. ADVIL [Suspect]
     Active Substance: IBUPROFEN
     Indication: NECK PAIN
     Dosage: UNK
  2. SUCRALOSE [Suspect]
     Active Substance: SUCRALOSE
     Dosage: UNK

REACTIONS (2)
  - Reaction to drug excipients [Unknown]
  - Feeling abnormal [Unknown]

NARRATIVE: CASE EVENT DATE: 20150311
